FAERS Safety Report 17956931 (Version 1)
Quarter: 2020Q2

REPORT INFORMATION
  Report Type: Spontaneous
  Country: US (occurrence: US)
  Receive Date: 20200629
  Receipt Date: 20200629
  Transmission Date: 20200714
  Serious: No
  Sender: FDA-Public Use
  Company Number: US-009507513-2006USA007758

PATIENT
  Age: 45 Year
  Sex: Female

DRUGS (2)
  1. ISENTRESS [Suspect]
     Active Substance: RALTEGRAVIR POTASSIUM
     Indication: PROPHYLAXIS AGAINST HIV INFECTION
     Dosage: 400 MG, TWICE A DAY FOR 28 DAYS
     Route: 048
     Dates: start: 20200616
  2. TRUVADA [Suspect]
     Active Substance: EMTRICITABINE\TENOFOVIR DISOPROXIL FUMARATE
     Indication: PROPHYLAXIS AGAINST HIV INFECTION
     Dosage: UNK
     Dates: start: 20200616

REACTIONS (2)
  - Product use in unapproved indication [Unknown]
  - Osteoporosis [Not Recovered/Not Resolved]

NARRATIVE: CASE EVENT DATE: 20200616
